FAERS Safety Report 6154519-6 (Version None)
Quarter: 2009Q2

REPORT INFORMATION
  Report Type: 
  Country: None (occurrence: None)
  Receive Date: 20090414
  Receipt Date: 20090409
  Transmission Date: 20091009
  Serious: Yes (Hospitalization)
  Sender: FDA-Public Use
  Company Number: FR-AVENTIS-200911422FR

PATIENT
  Age: 70 Year
  Sex: Male

DRUGS (6)
  1. KETEK [Suspect]
     Dates: start: 20040920
  2. LEVOFLOXACIN [Suspect]
     Dates: start: 20040925
  3. FLUINDIONE [Suspect]
     Indication: THROMBOSIS
     Dates: start: 20040801, end: 20040101
  4. HYDROXYCHLOROQUINE SULFATE [Concomitant]
     Indication: RHEUMATOID ARTHRITIS
     Dates: end: 20040801
  5. METHOTREXATE [Concomitant]
     Indication: RHEUMATOID ARTHRITIS
     Dates: end: 20040801
  6. AMOXICILLIN AND CLAVULANATE POTASSIUM [Concomitant]
     Dates: start: 20040925

REACTIONS (5)
  - BLOOD CREATININE INCREASED [None]
  - PROTEINURIA [None]
  - RENAL FAILURE [None]
  - TUBULOINTERSTITIAL NEPHRITIS [None]
  - WEIGHT DECREASED [None]
